FAERS Safety Report 7806166-5 (Version None)
Quarter: 2011Q4

REPORT INFORMATION
  Report Type: 
  Country: None (occurrence: None)
  Receive Date: 20111011
  Receipt Date: 20110927
  Transmission Date: 20120403
  Serious: Yes (Other)
  Sender: FDA-Public Use
  Company Number: CH-US-EMD SERONO, INC.-7082010

PATIENT
  Sex: Female

DRUGS (2)
  1. POSTMENOPAUSAL HORMONE THERAPY [Concomitant]
     Dates: start: 20100101
  2. REBIF [Suspect]
     Indication: MULTIPLE SCLEROSIS
     Route: 058
     Dates: start: 20040101

REACTIONS (1)
  - BREAST CANCER [None]
